FAERS Safety Report 9262480 (Version 1)
Quarter: 2013Q2

REPORT INFORMATION
  Report Type: Spontaneous
  Country: BR (occurrence: BR)
  Receive Date: 20130430
  Receipt Date: 20130430
  Transmission Date: 20140414
  Serious: Yes (Other)
  Sender: FDA-Public Use
  Company Number: BR-SANOFI-AVENTIS-2013SA041214

PATIENT
  Sex: Female

DRUGS (5)
  1. DAONIL [Suspect]
     Indication: PRODUCT USED FOR UNKNOWN INDICATION
     Route: 048
  2. DAONIL [Suspect]
     Indication: PRODUCT USED FOR UNKNOWN INDICATION
     Route: 048
  3. BROMAZEPAM [Concomitant]
     Dosage: STRENGTH: 60 MG
  4. DIAZEPAM [Concomitant]
     Dosage: STRENGTH: 10 MG
  5. ALCOHOL [Concomitant]

REACTIONS (2)
  - Loss of consciousness [Not Recovered/Not Resolved]
  - Overdose [Unknown]
